FAERS Safety Report 6678700-2 (Version None)
Quarter: 2010Q2

REPORT INFORMATION
  Report Type: 
  Country: None (occurrence: None)
  Receive Date: 20100413
  Receipt Date: 20100401
  Transmission Date: 20101027
  Serious: Yes (Hospitalization, Other)
  Sender: FDA-Public Use
  Company Number: PHHY2010GB17295

PATIENT
  Sex: Female

DRUGS (1)
  1. CLOZARIL [Suspect]
     Indication: SCHIZOPHRENIA
     Dosage: 300 MG/DAY
     Dates: start: 20070424

REACTIONS (8)
  - CONTUSION [None]
  - FALL [None]
  - HEAD INJURY [None]
  - INJURY [None]
  - NEUTROPENIA [None]
  - PSYCHOTIC DISORDER [None]
  - VARICELLA [None]
  - WHITE BLOOD CELL COUNT DECREASED [None]
